FAERS Safety Report 8167223 (Version 4)
Quarter: 2015Q4

REPORT INFORMATION
  Report Type: Spontaneous
  Country: US (occurrence: US)
  Receive Date: 20111004
  Receipt Date: 20151023
  Transmission Date: 20160305
  Serious: Yes (Other)
  Sender: FDA-Public Use
  Company Number: US-BAYER-2011-090307

PATIENT
  Age: 23 Year
  Sex: Female
  Weight: 82 kg

DRUGS (5)
  1. AZITHROMYCIN [Concomitant]
     Active Substance: AZITHROMYCIN ANHYDROUS
     Dosage: 250 MG, UNK
  2. CLARITHROMYCIN. [Concomitant]
     Active Substance: CLARITHROMYCIN
     Dosage: 500 MG, 1 T PO BID (INTERPRETED AS 1 TABLET BY MOUTH TWICE PER DAY)
     Route: 048
     Dates: start: 20090123
  3. PROAIR HFA [Concomitant]
     Active Substance: ALBUTEROL SULFATE
     Dosage: 8.5 G, TWO PUFFS Q 4 H PRN (INTERPRETED AS EVERY 4 HOURS AS NEEDED)
     Route: 045
     Dates: start: 20090123
  4. INDOMETHACIN. [Concomitant]
     Active Substance: INDOMETHACIN
     Dosage: 50 MG, 1 C PO TID PRN (INTERPRETED AS 1 CAPSULE THREE TIMES PER DAY)
     Route: 048
     Dates: start: 20090123
  5. YAZ [Suspect]
     Active Substance: DROSPIRENONE\ETHINYL ESTRADIOL
     Indication: CONTRACEPTION
     Dosage: UNK
     Dates: start: 200502, end: 200903

REACTIONS (3)
  - Biliary colic [None]
  - Emotional distress [None]
  - Cholecystitis chronic [None]

NARRATIVE: CASE EVENT DATE: 200903
